FAERS Safety Report 6524819-6 (Version None)
Quarter: 2009Q4

REPORT INFORMATION
  Report Type: 
  Country: None (occurrence: None)
  Receive Date: 20091224
  Receipt Date: 20091224
  Transmission Date: 20100525
  Serious: No
  Sender: FDA-Public Use
  Company Number: None

PATIENT
  Age: 63 Year
  Sex: Female
  Weight: 62.5964 kg

DRUGS (1)
  1. COLD REMEDY ORAL MIST [Suspect]
     Dosage: TID - 3 DOSES
     Dates: start: 20091216, end: 20091216

REACTIONS (1)
  - ANOSMIA [None]
